FAERS Safety Report 5307162-2 (Version None)
Quarter: 2007Q2

REPORT INFORMATION
  Report Type: 
  Country: None (occurrence: None)
  Receive Date: 20070425
  Receipt Date: 20070105
  Transmission Date: 20071010
  Serious: No
  Sender: FDA-Public Use
  Company Number: US-AMGEN-US205782

PATIENT
  Sex: Female

DRUGS (5)
  1. VECTIBIX [Suspect]
     Indication: COLORECTAL CANCER
     Route: 042
     Dates: start: 20061221
  2. SODIUM CHLORIDE [Concomitant]
  3. POTASSIUM ACETATE [Concomitant]
  4. MAGNESIUM [Concomitant]
  5. CODEINE SUL TAB [Concomitant]

REACTIONS (1)
  - EPISTAXIS [None]
